FAERS Safety Report 5447926-8 (Version None)
Quarter: 2007Q3

REPORT INFORMATION
  Report Type: 
  Country: None (occurrence: None)
  Receive Date: 20070910
  Receipt Date: 20070830
  Transmission Date: 20080115
  Serious: Yes (Other)
  Sender: FDA-Public Use
  Company Number: US-PFIZER INC-2007072216

PATIENT
  Age: 88 Year
  Sex: Female

DRUGS (1)
  1. NIFEDIPINE [Suspect]

REACTIONS (4)
  - CARDIAC FAILURE CONGESTIVE [None]
  - CHEST PAIN [None]
  - RAYNAUD'S PHENOMENON [None]
  - SKIN DISCOLOURATION [None]
